FAERS Safety Report 23118865 (Version 1)
Quarter: 2023Q4

REPORT INFORMATION
  Report Type: Spontaneous
  Country: GB (occurrence: GB)
  Receive Date: 20231028
  Receipt Date: 20231028
  Transmission Date: 20240109
  Serious: Yes (Other)
  Sender: FDA-Public Use
  Company Number: None

PATIENT
  Sex: Female

DRUGS (1)
  1. DIAZEPAM [Suspect]
     Active Substance: DIAZEPAM
     Indication: Product used for unknown indication
     Dosage: 10 MILLIGRAM DAILY; UNIT DOSE:5MG, FREQUENCY: TWICE DAILY, ADDITIONAL INFO: PPDIA31/1
     Route: 065
     Dates: start: 20231013

REACTIONS (3)
  - Depressed mood [Unknown]
  - Asthenia [Unknown]
  - Mental disorder [Unknown]
